FAERS Safety Report 15564620 (Version 1)
Quarter: 2018Q4

REPORT INFORMATION
  Report Type: Spontaneous
  Country: CA (occurrence: CA)
  Receive Date: 20181030
  Receipt Date: 20181030
  Transmission Date: 20190205
  Serious: Yes (Hospitalization)
  Sender: FDA-Public Use
  Company Number: CA-SUN PHARMACEUTICAL INDUSTRIES LTD-2018US-176930

PATIENT
  Age: 26 Year
  Sex: Male

DRUGS (1)
  1. PHENYTOIN. [Suspect]
     Active Substance: PHENYTOIN
     Indication: PRODUCT USED FOR UNKNOWN INDICATION
     Dosage: UNK
     Route: 065

REACTIONS (6)
  - Corneal epithelium defect [Recovered/Resolved]
  - Conjunctival oedema [Recovered/Resolved]
  - Conjunctival hyperaemia [Recovered/Resolved]
  - Toxic epidermal necrolysis [Unknown]
  - Visual acuity reduced [Recovered/Resolved]
  - Symblepharon [Recovered/Resolved]
